FAERS Safety Report 6377341-4 (Version None)
Quarter: 2009Q3

REPORT INFORMATION
  Report Type: 
  Country: None (occurrence: None)
  Receive Date: 20090925
  Receipt Date: 20090916
  Transmission Date: 20100115
  Serious: Yes (Other)
  Sender: FDA-Public Use
  Company Number: ZA-PFIZER INC-2009270756

PATIENT

DRUGS (6)
  1. ASPAVOR [Suspect]
     Dosage: 10 MG, UNK
     Route: 048
     Dates: start: 20090717
  2. CRESTOR [Suspect]
     Dosage: 5 MG, UNK
  3. ASPIRIN [Concomitant]
     Dosage: 81 MG, 1X/DAY
     Route: 048
  4. MULTI-VITAMINS [Concomitant]
     Dosage: UNK
     Route: 048
  5. CALCIUM [Concomitant]
     Dosage: UNK
     Route: 048
  6. OMEGA 3-6-9 [Concomitant]
     Dosage: UNK
     Route: 048

REACTIONS (8)
  - ARTHRALGIA [None]
  - ASTHENIA [None]
  - BACK PAIN [None]
  - CAROTID ARTERIOSCLEROSIS [None]
  - FATIGUE [None]
  - HYPERTENSION [None]
  - MIGRAINE [None]
  - MYALGIA [None]
